FAERS Safety Report 5887231-9 (Version None)
Quarter: 2008Q3

REPORT INFORMATION
  Report Type: 
  Country: None (occurrence: None)
  Receive Date: 20080915
  Receipt Date: 20080902
  Transmission Date: 20090109
  Serious: Yes (Other)
  Sender: FDA-Public Use
  Company Number: FEI2008-1574

PATIENT
  Age: 51 Year
  Sex: Female
  Weight: 63.9572 kg

DRUGS (4)
  1. PARAGARD T 380A [Suspect]
     Indication: CONTRACEPTION
     Dosage: INTRA-UTERINE
     Route: 015
     Dates: start: 20080821, end: 20080821
  2. HORMONE CREAM (UNSPECIFIED) [Concomitant]
  3. T3 (LIOTHYRONINE SODIUM) [Concomitant]
  4. T4 (LEVOTHYROXINE SODIUM) [Concomitant]

REACTIONS (4)
  - CONVULSION [None]
  - LOSS OF CONSCIOUSNESS [None]
  - PAIN [None]
  - SYNCOPE VASOVAGAL [None]
